FAERS Safety Report 18097056 (Version 1)
Quarter: 2020Q3

REPORT INFORMATION
  Report Type: Spontaneous
  Country: US (occurrence: US)
  Receive Date: 20200730
  Receipt Date: 20200730
  Transmission Date: 20201103
  Serious: Yes (Hospitalization)
  Sender: FDA-Public Use
  Company Number: None

PATIENT
  Age: 30 Year
  Sex: Female
  Weight: 56.25 kg

DRUGS (3)
  1. CANN I BE SO EXTRA TROP THE BEAT 1,000 MG FULL SPECTRUM CBD OIL [Suspect]
     Active Substance: CANNABIDIOL\HERBALS
     Indication: STRESS
     Dosage: ?          QUANTITY:2 DROP(S);?
     Route: 060
     Dates: start: 20200619, end: 20200619
  2. DAILY VITAMINS [Concomitant]
     Active Substance: VITAMINS
  3. ATENOLOL. [Concomitant]
     Active Substance: ATENOLOL

REACTIONS (3)
  - Muscle spasms [None]
  - Vomiting [None]
  - Nausea [None]

NARRATIVE: CASE EVENT DATE: 20200620
